FAERS Safety Report 7770685 (Version 3)
Quarter: 2014Q2

REPORT INFORMATION
  Report Type: Spontaneous
  Country: US (occurrence: US)
  Receive Date: 20110124
  Receipt Date: 20140409
  Transmission Date: 20141212
  Serious: Yes (Other)
  Sender: FDA-Public Use
  Company Number: US-BAYER-2011-007239

PATIENT
  Age: 32 Year
  Sex: Female
  Weight: 81.63 kg

DRUGS (9)
  1. OCELLA [Suspect]
     Dosage: UNK
     Dates: start: 20090312, end: 20090509
  2. KEFLEX [Concomitant]
     Dosage: UNK
     Dates: start: 1992
  3. Z-PAK [Concomitant]
     Dosage: UNK
     Dates: start: 1992
  4. PROVENTIL [Concomitant]
     Dosage: UNK
     Dates: start: 1992
  5. IBUPROFEN [Concomitant]
  6. MULTIVITAMINS, OTHER COMBINATIONS [Concomitant]
  7. FLUCONAZOLE [Concomitant]
  8. TERBINAFINE [Concomitant]
  9. TRIAMCINOLONE [Concomitant]

REACTIONS (3)
  - Cholelithiasis [None]
  - Cholecystitis chronic [None]
  - Pain [None]
